FAERS Safety Report 12738933 (Version 1)
Quarter: 2016Q3

REPORT INFORMATION
  Report Type: Spontaneous
  Country: US (occurrence: US)
  Receive Date: 20160912
  Receipt Date: 20160912
  Transmission Date: 20161109
  Serious: No
  Sender: FDA-Public Use
  Company Number: US-PFIZER INC-2016423323

PATIENT
  Sex: Female

DRUGS (1)
  1. IBUPROFEN. [Suspect]
     Active Substance: IBUPROFEN
     Dosage: 4 DF, DAILY (TAKING 4 TABLETS DAILY)

REACTIONS (2)
  - Gastric disorder [Unknown]
  - Diaphragmatic hernia [Unknown]
